FAERS Safety Report 7755136-4 (Version None)
Quarter: 2011Q3

REPORT INFORMATION
  Report Type: 
  Country: None (occurrence: None)
  Receive Date: 20110916
  Receipt Date: 20110909
  Transmission Date: 20111222
  Serious: No
  Sender: FDA-Public Use
  Company Number: US-PFIZER INC-2011214096

PATIENT

DRUGS (2)
  1. BACITRACIN [Suspect]
     Dosage: UNK
  2. NEOMYCIN SULFATE [Suspect]
     Dosage: UNK

REACTIONS (2)
  - RASH [None]
  - SKIN DISORDER [None]
